FAERS Safety Report 21980253 (Version 1)
Quarter: 2023Q1

REPORT INFORMATION
  Report Type: Report from Study
  Country: US (occurrence: US)
  Receive Date: 20230210
  Receipt Date: 20230210
  Transmission Date: 20230418
  Serious: Yes (Other)
  Sender: FDA-Public Use
  Company Number: US-ABBVIE-4299517

PATIENT
  Sex: Female

DRUGS (1)
  1. HUMIRA [Suspect]
     Active Substance: ADALIMUMAB
     Indication: Rheumatoid arthritis
     Route: 058
     Dates: start: 20221021

REACTIONS (4)
  - Skin fissures [Recovering/Resolving]
  - Lupus-like syndrome [Unknown]
  - Skin swelling [Recovering/Resolving]
  - Systemic lupus erythematosus [Unknown]
